FAERS Safety Report 6468272-X (Version None)
Quarter: 2009Q4

REPORT INFORMATION
  Report Type: 
  Country: None (occurrence: None)
  Receive Date: 20091130
  Receipt Date: 20091117
  Transmission Date: 20100525
  Serious: Yes (Death, Hospitalization)
  Sender: FDA-Public Use
  Company Number: 2009-04823

PATIENT
  Age: 83 Year
  Sex: Female

DRUGS (4)
  1. VELCADE [Suspect]
     Indication: MULTIPLE MYELOMA
     Dosage: INTRAVENOUS
     Route: 042
     Dates: start: 20060320, end: 20090709
  2. CORDARONE (AMIODARONE HYDROCHLORIDE0 [Concomitant]
  3. OROCAL VITAMIN D (COLECALCIFEROL, CALCIUM CARBONATE) [Concomitant]
  4. OMEPRAZOLE [Concomitant]

REACTIONS (12)
  - ASTHENIA [None]
  - HAEMATEMESIS [None]
  - HYPOTENSION [None]
  - HYPOVOLAEMIC SHOCK [None]
  - MULTI-ORGAN FAILURE [None]
  - PANCREATIC NECROSIS [None]
  - PANCREATITIS ACUTE [None]
  - PROCALCITONIN INCREASED [None]
  - PULMONARY OEDEMA [None]
  - RENAL FAILURE ACUTE [None]
  - RESPIRATORY DISTRESS [None]
  - UNEVALUABLE EVENT [None]
